FAERS Safety Report 7322420-8 (Version None)
Quarter: 2011Q1

REPORT INFORMATION
  Report Type: 
  Country: None (occurrence: None)
  Receive Date: 20110119
  Receipt Date: 20100710
  Transmission Date: 20110831
  Serious: Yes (Other)
  Sender: FDA-Public Use
  Company Number: A-NJ2009-24844

PATIENT
  Age: 76 Year
  Sex: Female

DRUGS (21)
  1. REVATIO [Concomitant]
  2. GLUCOPHAGE [Concomitant]
  3. PRILOSEC (OMEPRAZOLE) [Concomitant]
  4. VITAMIN B12 [Concomitant]
  5. BISOPROLOL (BISOPROLOL) [Concomitant]
  6. FERROUS SULFATE TAB [Concomitant]
  7. ALLOPURINOL [Concomitant]
  8. COUMADIN [Concomitant]
  9. LOVASTATIN [Suspect]
     Dosage: 40 MG, QD
     Dates: end: 20100625
  10. CALCIUM W/VITAMIN D NOS (CALCIUM, VITAMIN D NOS) [Suspect]
  11. LISINOPRIL [Concomitant]
  12. LASIX [Concomitant]
  13. TRACLEER [Suspect]
     Indication: PULMONARY ARTERIAL HYPERTENSION
     Dosage: SEE IMAGE
     Route: 048
     Dates: start: 20100516, end: 20100623
  14. TRACLEER [Suspect]
     Indication: PULMONARY ARTERIAL HYPERTENSION
     Dosage: SEE IMAGE
     Route: 048
     Dates: start: 20090123, end: 20090101
  15. TRACLEER [Suspect]
     Indication: PULMONARY ARTERIAL HYPERTENSION
     Dosage: SEE IMAGE
     Route: 048
     Dates: start: 20090408
  16. TRACLEER [Suspect]
     Indication: PULMONARY ARTERIAL HYPERTENSION
     Dosage: SEE IMAGE
     Route: 048
     Dates: start: 20090101, end: 20090407
  17. TRACLEER [Suspect]
     Indication: PULMONARY ARTERIAL HYPERTENSION
     Dosage: SEE IMAGE
     Route: 048
     Dates: start: 20100624, end: 20100624
  18. TRACLEER [Suspect]
     Indication: PULMONARY ARTERIAL HYPERTENSION
     Dosage: SEE IMAGE
     Route: 048
     Dates: start: 20090101, end: 20090901
  19. TRACLEER [Suspect]
     Indication: PULMONARY ARTERIAL HYPERTENSION
     Dosage: SEE IMAGE
     Route: 048
     Dates: start: 20090901, end: 20091101
  20. ASPIRIN [Concomitant]
  21. HYDROCHLOROTHIAZIDE [Concomitant]

REACTIONS (4)
  - LIVER FUNCTION TEST ABNORMAL [None]
  - ASPARTATE AMINOTRANSFERASE INCREASED [None]
  - BLOOD ALKALINE PHOSPHATASE INCREASED [None]
  - ALANINE AMINOTRANSFERASE INCREASED [None]
